FAERS Safety Report 5171175-4 (Version None)
Quarter: 2006Q4

REPORT INFORMATION
  Report Type: 
  Country: None (occurrence: None)
  Receive Date: 20061208
  Receipt Date: 20061208
  Transmission Date: 20070319
  Serious: Yes (Hospitalization)
  Sender: FDA-Public Use
  Company Number: None

PATIENT
  Age: 59 Year
  Sex: Female
  Weight: 67.5 kg

DRUGS (1)
  1. REMODULIN [Suspect]
     Indication: PULMONARY HYPERTENSION
     Dosage: 70MG/KG/MIN  CONTINUOUS  IV
     Route: 042

REACTIONS (3)
  - CENTRAL LINE INFECTION [None]
  - HYPOTENSION [None]
  - PYREXIA [None]
